FAERS Safety Report 4732546-0 (Version None)
Quarter: 2005Q3

REPORT INFORMATION
  Report Type: 
  Country: None (occurrence: None)
  Receive Date: 20050803
  Receipt Date: 20050721
  Transmission Date: 20060218
  Serious: Yes (Congenital Anomaly)
  Sender: FDA-Public Use
  Company Number: CH-GLAXOSMITHKLINE-B0389162A

PATIENT
  Sex: Male
  Weight: 3 kg

DRUGS (1)
  1. DEROXAT [Suspect]
     Dosage: 40MG PER DAY

REACTIONS (4)
  - ANOTIA [None]
  - APLASIA [None]
  - DRUG EXPOSURE DURING PREGNANCY [None]
  - EAR MALFORMATION [None]
